FAERS Safety Report 24316081 (Version 1)
Quarter: 2024Q3

REPORT INFORMATION
  Report Type: Spontaneous
  Country: AU (occurrence: AU)
  Receive Date: 20240913
  Receipt Date: 20240913
  Transmission Date: 20241017
  Serious: Yes (Hospitalization)
  Sender: RANBAXY
  Company Number: AU-SUN PHARMACEUTICAL INDUSTRIES LTD-2024R1-466321

PATIENT
  Age: 54 Year
  Sex: Female

DRUGS (5)
  1. LENALIDOMIDE [Suspect]
     Active Substance: LENALIDOMIDE
     Indication: Plasma cell myeloma
     Dosage: 10 MILLIGRAM, MONTHLY
     Route: 058
     Dates: start: 20230828, end: 20240226
  2. ACETAMINOPHEN [Suspect]
     Active Substance: ACETAMINOPHEN
     Indication: Prophylaxis
     Dosage: 1000 MILLIGRAM, MONTHLY
     Route: 048
     Dates: start: 20230814, end: 20240729
  3. DARATUMUMAB [Suspect]
     Active Substance: DARATUMUMAB
     Indication: Plasma cell myeloma
     Dosage: 1800 MILLIGRAM, MONTHLY
     Route: 058
     Dates: start: 20230828, end: 20240729
  4. ELRANATAMAB [Suspect]
     Active Substance: ELRANATAMAB
     Indication: Plasma cell myeloma
     Dosage: 76 MILLIGRAM, FORTNIGHTLY, 1 CYCLICAL
     Route: 058
     Dates: start: 20230814, end: 20240729
  5. LORATADINE [Concomitant]
     Active Substance: LORATADINE
     Indication: Prophylaxis
     Dosage: 10 MILLIGRAM
     Route: 065
     Dates: start: 20230814, end: 20240729

REACTIONS (1)
  - Cough [Not Recovered/Not Resolved]

NARRATIVE: CASE EVENT DATE: 20240707
